FAERS Safety Report 8745634 (Version 3)
Quarter: 2012Q4

REPORT INFORMATION
  Report Type: 
  Country: US (occurrence: US)
  Receive Date: 20120826
  Receipt Date: 20120922
  Transmission Date: 20130627
  Serious: No
  Sender: FDA-Public Use
  Company Number: US-009507513-1208USA002936

PATIENT
  Age: 21 Year
  Sex: Female
  Weight: 63.95 kg

DRUGS (1)
  1. IMPLANON [Suspect]
     Dosage: UNK
     Route: 059
     Dates: start: 20120725

REACTIONS (4)
  - Device difficult to use [Unknown]
  - Product quality issue [Unknown]
  - Device difficult to use [Unknown]
  - No adverse event [Unknown]
